FAERS Safety Report 8000299-9 (Version None)
Quarter: 2011Q4

REPORT INFORMATION
  Report Type: 
  Country: None (occurrence: None)
  Receive Date: 20111220
  Receipt Date: 20111220
  Transmission Date: 20120403
  Serious: Yes (Death)
  Sender: FDA-Public Use
  Company Number: None

PATIENT
  Sex: Female

DRUGS (1)
  1. CIMZIA [Suspect]
     Indication: CROHN'S DISEASE
     Dosage: 200MG X2 VIALS 400MG Q4WEEKS SUB-Q
     Route: 058
     Dates: start: 20110601, end: 20111101

REACTIONS (3)
  - HYPERTENSION [None]
  - RESPIRATORY DISORDER [None]
  - CROHN'S DISEASE [None]
